FAERS Safety Report 8525693 (Version 3)
Quarter: 2012Q4

REPORT INFORMATION
  Report Type: Report from Study
  Country: FR (occurrence: FR)
  Receive Date: 20120423
  Receipt Date: 20120905
  Transmission Date: 20130627
  Serious: Yes (Other)
  Sender: FDA-Public Use
  Company Number: FR-GLAXOSMITHKLINE-B0796634A

PATIENT
  Age: 54 Year
  Sex: Female
  Weight: 71 kg

DRUGS (2)
  1. PAZOPANIB [Suspect]
     Indication: LEIOMYOSARCOMA
     Route: 048
     Dates: start: 20111117, end: 20120411
  2. GEMCITABINE [Suspect]
     Indication: LEIOMYOSARCOMA
     Dosage: 15800MG cumulative dose
     Route: 042
     Dates: start: 20111117, end: 20120314

REACTIONS (1)
  - Transient ischaemic attack [Recovered/Resolved]
